FAERS Safety Report 7414299-0 (Version None)
Quarter: 2011Q2

REPORT INFORMATION
  Report Type: 
  Country: None (occurrence: None)
  Receive Date: 20110414
  Receipt Date: 20101104
  Transmission Date: 20111010
  Serious: No
  Sender: FDA-Public Use
  Company Number: US-MYLANLABS-2010S1020486

PATIENT
  Sex: Female

DRUGS (1)
  1. BUSPIRONE HCL [Suspect]

REACTIONS (1)
  - BLOOD BILIRUBIN INCREASED [None]
